FAERS Safety Report 18986420 (Version 1)
Quarter: 2021Q1

REPORT INFORMATION
  Report Type: Report from Study
  Country: US (occurrence: US)
  Receive Date: 20210309
  Receipt Date: 20210309
  Transmission Date: 20210420
  Serious: Yes (Other)
  Sender: FDA-Public Use
  Company Number: US-BRISTOL-MYERS SQUIBB COMPANY-BMS-2021-021829

PATIENT
  Sex: Male

DRUGS (1)
  1. APIXABAN [Suspect]
     Active Substance: APIXABAN
     Indication: CEREBROVASCULAR ACCIDENT PROPHYLAXIS
     Dosage: 5 MILLIGRAM, BID
     Route: 065
     Dates: start: 201505

REACTIONS (14)
  - Vitreous disorder [Unknown]
  - Renal failure [Unknown]
  - Wound haemorrhage [Unknown]
  - Haemorrhagic diathesis [Unknown]
  - Anaemia [Unknown]
  - Skin laceration [Unknown]
  - Head injury [Unknown]
  - Cardiac disorder [Unknown]
  - Neuropathy peripheral [Unknown]
  - Maculopathy [Unknown]
  - Parkinson^s disease [Unknown]
  - Cardiac failure congestive [Unknown]
  - Diabetes mellitus [Recovered/Resolved]
  - General physical health deterioration [Unknown]

NARRATIVE: CASE EVENT DATE: 2017
